FAERS Safety Report 5810234-7 (Version None)
Quarter: 2008Q3

REPORT INFORMATION
  Report Type: 
  Country: None (occurrence: None)
  Receive Date: 20080715
  Receipt Date: 20071220
  Transmission Date: 20090109
  Serious: No
  Sender: FDA-Public Use
  Company Number: A0699997A

PATIENT
  Age: 52 Year
  Sex: Female

DRUGS (2)
  1. IMITREX [Suspect]
     Indication: MIGRAINE
     Dosage: 50MG AS REQUIRED
     Route: 048
     Dates: start: 19970101
  2. ANTI-CHOLESTEROL MEDICATION [Concomitant]

REACTIONS (2)
  - ORAL PAIN [None]
  - TEMPERATURE INTOLERANCE [None]
